FAERS Safety Report 22125594 (Version 2)
Quarter: 2023Q2

REPORT INFORMATION
  Report Type: Spontaneous
  Country: US (occurrence: US)
  Receive Date: 20230322
  Receipt Date: 20230519
  Transmission Date: 20230722
  Serious: Yes (Hospitalization, Disabling, Other)
  Sender: FDA-Public Use
  Company Number: US-APIL-2308879US

PATIENT
  Weight: 52.16 kg

DRUGS (4)
  1. LINZESS [Suspect]
     Active Substance: LINACLOTIDE
     Indication: Irritable bowel syndrome
     Dosage: 145 ?G, QD
     Dates: start: 202210
  2. LINZESS [Suspect]
     Active Substance: LINACLOTIDE
     Indication: Product used for unknown indication
     Dosage: 72 ?G
     Dates: start: 202112, end: 2022
  3. OMEPRAZOLE [Concomitant]
     Active Substance: OMEPRAZOLE
     Indication: Gastrooesophageal reflux disease
     Dosage: 40 MG
     Dates: start: 2008
  4. COLLAGEN [Concomitant]
     Active Substance: COLLAGEN
     Indication: Arthropathy

REACTIONS (8)
  - Disability [Unknown]
  - Hospitalisation [Unknown]
  - Functional gastrointestinal disorder [Unknown]
  - Vaginal neoplasm [Unknown]
  - Infection [Recovered/Resolved]
  - Abdominal adhesions [Recovering/Resolving]
  - Blood potassium decreased [Recovered/Resolved]
  - COVID-19 [Recovered/Resolved]

NARRATIVE: CASE EVENT DATE: 20220501
